FAERS Safety Report 17557477 (Version 2)
Quarter: 2020Q1

REPORT INFORMATION
  Report Type: Spontaneous
  Country: US (occurrence: US)
  Receive Date: 20200318
  Receipt Date: 20200319
  Transmission Date: 20200409
  Serious: Yes (Other)
  Sender: FDA-Public Use
  Company Number: US-PFIZER INC-2019526571

PATIENT
  Age: 74 Year
  Sex: Female
  Weight: 88 kg

DRUGS (2)
  1. ARTHROTEC [Suspect]
     Active Substance: DICLOFENAC SODIUM\MISOPROSTOL
     Indication: CHOLELITHIASIS
  2. ARTHROTEC [Suspect]
     Active Substance: DICLOFENAC SODIUM\MISOPROSTOL
     Indication: ARTHRITIS
     Dosage: 1 DF, 2X/DAY [DICLOFENAC SODIUM: 75 MG]/[MISOPROSTOL: 200 MCG]
     Route: 048
     Dates: end: 202003

REACTIONS (2)
  - Drug dependence [Unknown]
  - Intentional dose omission [Unknown]

NARRATIVE: CASE EVENT DATE: 202003
